FAERS Safety Report 12857656 (Version 1)
Quarter: 2016Q4

REPORT INFORMATION
  Report Type: Report from Study
  Country: CA (occurrence: CA)
  Receive Date: 20161018
  Receipt Date: 20161018
  Transmission Date: 20170207
  Serious: Yes (Other)
  Sender: FDA-Public Use
  Company Number: CA-009507513-1610CAN008279

PATIENT
  Age: 55 Year
  Sex: Male

DRUGS (17)
  1. OXYBUTYNIN [Concomitant]
     Active Substance: OXYBUTYNIN
     Dosage: REDUCED X2 WEEKS
     Route: 048
  2. PANTOPRAZOLE [Concomitant]
     Active Substance: PANTOPRAZOLE SODIUM
     Dosage: UNK, QD
     Route: 048
  3. TRAMADOL HYDROCHLORIDE. [Concomitant]
     Active Substance: TRAMADOL HYDROCHLORIDE
     Indication: PAIN
     Dosage: UNK, Q12H
     Route: 048
  4. NEUPOGEN [Concomitant]
     Active Substance: FILGRASTIM
     Dosage: WITH A NEUTROPHIL COUNT OF LESS THAN 1.5 ON A P.R.N. BASIS
     Route: 058
  5. MAGNESIUM OXIDE. [Concomitant]
     Active Substance: MAGNESIUM OXIDE
     Dosage: UNK, BID
     Route: 048
  6. CENTRUM (MINERALS (UNSPECIFIED) (+) VITAMINS (UNSPECIFIED)) [Concomitant]
  7. POSANOL [Suspect]
     Active Substance: POSACONAZOLE
     Indication: TRANSPLANT
     Dosage: 300 MG, DAILY X 30 DAYS
     Route: 048
     Dates: start: 20160223
  8. TACROLIMUS. [Concomitant]
     Active Substance: TACROLIMUS
     Dosage: Q12H, 0.3 MG IN A.M. AND 0.4 MG IN P.M.
     Route: 048
  9. PENICILLIN VK [Concomitant]
     Active Substance: PENICILLIN V POTASSIUM
     Dosage: UNK, BID
     Route: 048
  10. OXYCODONE [Concomitant]
     Active Substance: OXYCODONE
     Dosage: UNK, Q4H
     Route: 048
  11. LABETALOL [Concomitant]
     Active Substance: LABETALOL\LABETALOL HYDROCHLORIDE
     Dosage: UNK, BID
     Route: 048
  12. TACROLIMUS. [Concomitant]
     Active Substance: TACROLIMUS
     Dosage: 0.1% TOPICALLY
  13. TANSULOSINA [Concomitant]
     Dosage: AT BEDTIME
  14. ALLOPURINOL. [Concomitant]
     Active Substance: ALLOPURINOL
     Dosage: UNK, QD
     Route: 048
  15. ACYCLOVIR. [Concomitant]
     Active Substance: ACYCLOVIR
     Dosage: UNK, BID
     Route: 048
  16. PENTAMIDINE MESYLATE [Concomitant]
     Dosage: UNK, EVERY 4 WEEKS
     Route: 055
  17. TRIAMCINOLONE [Concomitant]
     Active Substance: TRIAMCINOLONE
     Dosage: 0.1 % CREAM TOPICALLY

REACTIONS (11)
  - Cachexia [Unknown]
  - Acute kidney injury [Unknown]
  - Splenomegaly [Unknown]
  - Product use issue [Unknown]
  - Renal impairment [Unknown]
  - Cytomegalovirus infection [Unknown]
  - Cystitis haemorrhagic [Unknown]
  - Acute graft versus host disease in skin [Unknown]
  - Viral haemorrhagic cystitis [Unknown]
  - Nasopharyngitis [Unknown]
  - Nausea [Unknown]

NARRATIVE: CASE EVENT DATE: 2016
